FAERS Safety Report 4511093-5 (Version None)
Quarter: 2004Q4

REPORT INFORMATION
  Report Type: 
  Country: None (occurrence: None)
  Receive Date: 20041015
  Receipt Date: 20040106
  Transmission Date: 20050328
  Serious: Yes (Other)
  Sender: FDA-Public Use
  Company Number: 2004001218

PATIENT
  Sex: Male

DRUGS (10)
  1. NEURONTIN [Suspect]
     Indication: NEUROPATHY PERIPHERAL
     Dates: start: 20020801, end: 20031201
  2. RITONAVIR (RITONAVIR) [Concomitant]
  3. ATAZANAVIR (ATAZANAVIR) [Concomitant]
  4. ZIDOVUDINE [Concomitant]
  5. CETIRIZINE HCL [Concomitant]
  6. FLUTICASONE PROPIONATE [Concomitant]
  7. ALLOPURINOL [Concomitant]
  8. ACYCLOVIR [Concomitant]
  9. AZITHROMYCIN [Concomitant]
  10. BACTRIM [Concomitant]

REACTIONS (3)
  - ANGER [None]
  - DEPRESSION [None]
  - SUICIDAL IDEATION [None]
